FAERS Safety Report 10389529 (Version 9)
Quarter: 2014Q4

REPORT INFORMATION
  Report Type: Spontaneous
  Country: US (occurrence: US)
  Receive Date: 20140818
  Receipt Date: 20141217
  Transmission Date: 20150528
  Serious: No
  Sender: FDA-Public Use
  Company Number: US-009507513-1408USA008510

PATIENT
  Age: 19 Year
  Sex: Female
  Weight: 108.84 kg

DRUGS (1)
  1. IMPLANON [Suspect]
     Active Substance: ETONOGESTREL
     Indication: CONTRACEPTION
     Dosage: 1 IMPLANON ROD
     Route: 059
     Dates: start: 20110715

REACTIONS (6)
  - Incorrect drug administration duration [Unknown]
  - Device dislocation [Unknown]
  - Complication of device removal [Unknown]
  - Expired product administered [Unknown]
  - Weight increased [Unknown]
  - Medical device complication [Recovered/Resolved]

NARRATIVE: CASE EVENT DATE: 2014
